FAERS Safety Report 23186003 (Version 9)
Quarter: 2024Q1

REPORT INFORMATION
  Report Type: Spontaneous
  Country: US (occurrence: US)
  Receive Date: 20231115
  Receipt Date: 20240320
  Transmission Date: 20240409
  Serious: Yes (Other)
  Sender: FDA-Public Use
  Company Number: US-PFIZER INC-202300362189

PATIENT
  Age: 79 Year
  Sex: Female

DRUGS (2)
  1. GENOTROPIN [Suspect]
     Active Substance: SOMATROPIN
     Indication: Blood growth hormone abnormal
     Dosage: 0.3 MG, DAILY
  2. GENOTROPIN [Suspect]
     Active Substance: SOMATROPIN
     Dosage: 0.2 MG
     Dates: start: 202310

REACTIONS (9)
  - Hepatic pain [Unknown]
  - Seizure [Unknown]
  - Loss of consciousness [Unknown]
  - Poor quality device used [Unknown]
  - Drug dose omission by device [Unknown]
  - Intentional dose omission [Unknown]
  - Liquid product physical issue [Unknown]
  - Device information output issue [Unknown]
  - Device leakage [Unknown]

NARRATIVE: CASE EVENT DATE: 20240212
